FAERS Safety Report 10453066 (Version 1)
Quarter: 2014Q3

REPORT INFORMATION
  Report Type: Report from Study
  Country: US (occurrence: US)
  Receive Date: 20140915
  Receipt Date: 20140915
  Transmission Date: 20150326
  Serious: No
  Sender: FDA-Public Use
  Company Number: US-ABBVIE-14P-163-1235078-00

PATIENT
  Age: 39 Year
  Sex: Female

DRUGS (2)
  1. LUPANETA PACK [Suspect]
     Active Substance: ISOPROPYL ALCOHOL\LEUPROLIDE ACETATE\NORETHINDRONE ACETATE
     Indication: ENDOMETRIOSIS
     Route: 048
     Dates: start: 20140324
  2. LUPANETA PACK [Suspect]
     Active Substance: ISOPROPYL ALCOHOL\LEUPROLIDE ACETATE\NORETHINDRONE ACETATE
     Indication: ENDOMETRIOSIS
     Dates: start: 20140324

REACTIONS (7)
  - Amnesia [Not Recovered/Not Resolved]
  - Abdominal pain [Recovering/Resolving]
  - Pelvic pain [Recovering/Resolving]
  - Pain in extremity [Recovering/Resolving]
  - Menstrual disorder [Recovered/Resolved]
  - Hyperhidrosis [Unknown]
  - Metrorrhagia [Recovered/Resolved]

NARRATIVE: CASE EVENT DATE: 20140421
